FAERS Safety Report 25217429 (Version 1)
Quarter: 2025Q2

REPORT INFORMATION
  Report Type: Other
  Country: US (occurrence: US)
  Receive Date: 20250420
  Receipt Date: 20250420
  Transmission Date: 20250716
  Serious: Yes (Other)
  Sender: DEXCEL LTD.
  Company Number: None

PATIENT
  Age: 8 Decade
  Sex: Male

DRUGS (5)
  1. DONEPEZIL [Suspect]
     Active Substance: DONEPEZIL
     Indication: Dementia Alzheimer^s type
  2. QUETIAPINE [Concomitant]
     Active Substance: QUETIAPINE
  3. MEMANTINE [Concomitant]
     Active Substance: MEMANTINE
  4. ATROPINE [Suspect]
     Active Substance: ATROPINE
     Indication: Bradycardia
     Route: 050
  5. KEPPRA [Concomitant]
     Active Substance: LEVETIRACETAM
     Route: 050

REACTIONS (5)
  - Bifascicular block [Recovered/Resolved]
  - Trifascicular block [Recovered/Resolved]
  - Rhythm idioventricular [Recovered/Resolved]
  - Atrioventricular block complete [Recovered/Resolved]
  - Drug ineffective [Unknown]
